FAERS Safety Report 13361894 (Version 3)
Quarter: 2017Q2

REPORT INFORMATION
  Report Type: Report from Study
  Country: US (occurrence: US)
  Receive Date: 20170323
  Receipt Date: 20170522
  Transmission Date: 20170830
  Serious: Yes (Other)
  Sender: FDA-Public Use
  Company Number: PHHY2017US044017

PATIENT
  Age: 37 Year
  Sex: Female

DRUGS (2)
  1. VALIUM [Concomitant]
     Active Substance: DIAZEPAM
     Indication: CLAUSTROPHOBIA
     Dosage: UNK
     Route: 065
     Dates: start: 20170301, end: 20170301
  2. GILENYA [Suspect]
     Active Substance: FINGOLIMOD HYDROCHLORIDE
     Indication: MULTIPLE SCLEROSIS
     Dosage: UNK UNK, QD
     Route: 048

REACTIONS (11)
  - Vision blurred [Unknown]
  - Blepharospasm [Unknown]
  - Arthralgia [Unknown]
  - Lymphopenia [Unknown]
  - Fatigue [Recovered/Resolved]
  - Skin hypopigmentation [Unknown]
  - Paraesthesia [Unknown]
  - Injection site hypoaesthesia [Recovered/Resolved]
  - Chills [Recovered/Resolved]
  - Viral upper respiratory tract infection [Recovered/Resolved]
  - Injection site pain [Recovered/Resolved]

NARRATIVE: CASE EVENT DATE: 20161226
